FAERS Safety Report 25218483 (Version 1)
Quarter: 2025Q2

REPORT INFORMATION
  Report Type: Spontaneous
  Country: CN (occurrence: CN)
  Receive Date: 20250421
  Receipt Date: 20250421
  Transmission Date: 20250716
  Serious: Yes (Other)
  Sender: RANBAXY
  Company Number: CN-SUN PHARMACEUTICAL INDUSTRIES LTD-2025R1-503979

PATIENT
  Age: 27 Year
  Sex: Male

DRUGS (12)
  1. DEXAMETHASONE\TOBRAMYCIN [Suspect]
     Active Substance: DEXAMETHASONE\TOBRAMYCIN
     Indication: Corneal epithelium defect
     Dosage: UNK UNK, QID
  2. DEXAMETHASONE\TOBRAMYCIN [Suspect]
     Active Substance: DEXAMETHASONE\TOBRAMYCIN
     Indication: Postoperative care
  3. BROMFENAC [Suspect]
     Active Substance: BROMFENAC
     Indication: Corneal epithelium defect
     Dosage: UNK UNK, BID
  4. BROMFENAC [Suspect]
     Active Substance: BROMFENAC
     Indication: Postoperative care
  5. LOTEPREDNOL [Suspect]
     Active Substance: LOTEPREDNOL
     Indication: Corneal epithelium defect
     Dosage: UNK UNK, TID
  6. LOTEPREDNOL [Suspect]
     Active Substance: LOTEPREDNOL
     Indication: Postoperative care
  7. SODIUM HYALURONATE [Suspect]
     Active Substance: HYALURONATE SODIUM
     Indication: Corneal epithelium defect
     Dosage: UNK UNK, 1DOSE/1HOUR
  8. SODIUM HYALURONATE [Suspect]
     Active Substance: HYALURONATE SODIUM
     Indication: Postoperative care
  9. FLUOROMETHOLONE [Suspect]
     Active Substance: FLUOROMETHOLONE
     Indication: Corneal epithelium defect
     Dosage: UNK, TID
  10. FLUOROMETHOLONE [Suspect]
     Active Substance: FLUOROMETHOLONE
     Indication: Postoperative care
  11. CARBOMER [Suspect]
     Active Substance: CARBOMER
     Indication: Corneal epithelium defect
     Dosage: UNK, OD
  12. CARBOMER [Suspect]
     Active Substance: CARBOMER
     Indication: Postoperative care

REACTIONS (2)
  - Keratitis viral [Unknown]
  - Impaired healing [Recovering/Resolving]
